FAERS Safety Report 7206901-3 (Version None)
Quarter: 2011Q1

REPORT INFORMATION
  Report Type: 
  Country: None (occurrence: None)
  Receive Date: 20110103
  Receipt Date: 20101230
  Transmission Date: 20110831
  Serious: Yes (Other)
  Sender: FDA-Public Use
  Company Number: GB-SHIRE-SPV1-2010-02089

PATIENT
  Age: 13 Year
  Sex: Male
  Weight: 31.2 kg

DRUGS (6)
  1. EQUASYM XL [Suspect]
     Indication: AUTISM
  2. RISPERIDONE [Suspect]
     Indication: ATTENTION DEFICIT/HYPERACTIVITY DISORDER
     Dosage: .5MG DAILY
     Route: 048
     Dates: start: 20060601
  3. VEXOL [Suspect]
     Indication: PRODUCT USED FOR UNKNOWN INDICATION
     Route: 047
  4. PRED FORTE [Suspect]
     Indication: PRODUCT USED FOR UNKNOWN INDICATION
     Route: 047
  5. RISPERIDONE [Suspect]
     Indication: AUTISM
  6. EQUASYM XL [Suspect]
     Indication: ATTENTION DEFICIT/HYPERACTIVITY DISORDER
     Dosage: 50 MG, 1X/DAY:QD
     Route: 048
     Dates: start: 20060901

REACTIONS (10)
  - EYE SWELLING [None]
  - OCULAR HYPERAEMIA [None]
  - EYE PAIN [None]
  - PAPILLOEDEMA [None]
  - VISUAL IMPAIRMENT [None]
  - CSF PRESSURE INCREASED [None]
  - EYE PRURITUS [None]
  - BENIGN INTRACRANIAL HYPERTENSION [None]
  - CONJUNCTIVITIS [None]
  - EYELID OEDEMA [None]
